FAERS Safety Report 10368323 (Version 2)
Quarter: 2014Q3

REPORT INFORMATION
  Report Type: Spontaneous
  Country: US (occurrence: US)
  Receive Date: 20140807
  Receipt Date: 20140828
  Transmission Date: 20150326
  Serious: No
  Sender: FDA-Public Use
  Company Number: US-PFIZER INC-2014218938

PATIENT
  Age: 73 Year
  Sex: Female
  Weight: 72.56 kg

DRUGS (2)
  1. AMLODIPINE/ATORVASTATIN [Suspect]
     Active Substance: AMLODIPINE BESYLATE\ATORVASTATIN CALCIUM
     Indication: HYPERTENSION
     Dosage: (AMLODIPINE BESYLATE 10MG/ATORVASTATIN CALCIUM 20MG), DAILY
     Dates: start: 201407
  2. VITAMIN D [Concomitant]
     Active Substance: CHOLECALCIFEROL
     Dosage: 5000 MG, WEEKLY

REACTIONS (1)
  - Headache [Not Recovered/Not Resolved]

NARRATIVE: CASE EVENT DATE: 201407
